FAERS Safety Report 6238915-4 (Version None)
Quarter: 2009Q2

REPORT INFORMATION
  Report Type: 
  Country: None (occurrence: None)
  Receive Date: 20090622
  Receipt Date: 20090610
  Transmission Date: 20091009
  Serious: Yes (Death)
  Sender: FDA-Public Use
  Company Number: ZA-PFIZER INC-2009228321

PATIENT
  Age: 51 Year

DRUGS (9)
  1. SILDENAFIL CITRATE [Suspect]
     Indication: PULMONARY HYPERTENSION
     Route: 048
     Dates: start: 20071201
  2. LASIX [Concomitant]
  3. SPIRACTIN [Concomitant]
  4. CORDARONE [Concomitant]
  5. DISPRIN [Concomitant]
  6. XATRAL [Concomitant]
  7. PANTOLOC ^BYK MADAUS^ [Concomitant]
  8. LIPITOR [Concomitant]
  9. ELTROXIN [Concomitant]

REACTIONS (1)
  - LEIOMYOSARCOMA [None]
